FAERS Safety Report 9026588 (Version 1)
Quarter: 2013Q1

REPORT INFORMATION
  Report Type: Spontaneous
  Country: US (occurrence: US)
  Receive Date: 20130123
  Receipt Date: 20130123
  Transmission Date: 20140127
  Serious: Yes (Hospitalization)
  Sender: FDA-Public Use
  Company Number: PHEH2012US014446

PATIENT
  Age: 74 Year
  Sex: Male

DRUGS (5)
  1. EXJADE [Suspect]
     Indication: IRON OVERLOAD
     Dosage: 3500 MG (07 TABLETS OF 500 MG)
     Route: 048
  2. BENADRYL [Concomitant]
     Dosage: 25 MG, UNK
     Route: 048
  3. TAMSULOSIN [Concomitant]
  4. TUMS [Concomitant]
     Dosage: 500 MG, UNK
     Route: 048
  5. GLUC [Concomitant]

REACTIONS (3)
  - Pneumonia [Unknown]
  - Drug ineffective [Unknown]
  - Serum ferritin increased [Unknown]
